FAERS Safety Report 25402701 (Version 1)
Quarter: 2025Q2

REPORT INFORMATION
  Report Type: Spontaneous
  Country: GB (occurrence: GB)
  Receive Date: 20250605
  Receipt Date: 20250605
  Transmission Date: 20250717
  Serious: Yes (Death, Other)
  Sender: MYLAN
  Company Number: GB-MHRA-MED-202504181101567170-KNFHB

PATIENT
  Age: 86 Year
  Sex: Female
  Weight: 85 kg

DRUGS (64)
  1. APIXABAN [Suspect]
     Active Substance: APIXABAN
     Indication: Thrombosis
     Dosage: 2 DOSAGE FORM, QD (10MG TWICE PER DAY FOR ONE WEEK, THEN 5MG TWICE A DAY FOR 6 MONTHS)
     Route: 065
     Dates: start: 20241123
  2. APIXABAN [Suspect]
     Active Substance: APIXABAN
     Dosage: 2 DOSAGE FORM, QD (10MG TWICE PER DAY FOR ONE WEEK, THEN 5MG TWICE A DAY FOR 6 MONTHS)
     Dates: start: 20241123
  3. APIXABAN [Suspect]
     Active Substance: APIXABAN
     Dosage: 2 DOSAGE FORM, QD (10MG TWICE PER DAY FOR ONE WEEK, THEN 5MG TWICE A DAY FOR 6 MONTHS)
     Dates: start: 20241123
  4. APIXABAN [Suspect]
     Active Substance: APIXABAN
     Dosage: 2 DOSAGE FORM, QD (10MG TWICE PER DAY FOR ONE WEEK, THEN 5MG TWICE A DAY FOR 6 MONTHS)
     Route: 065
     Dates: start: 20241123
  5. APIXABAN [Suspect]
     Active Substance: APIXABAN
     Dosage: 1 DOSAGE FORM, BID (10MG TWICE PER DAY FOR ONE WEEK, THEN 5MG TWICE A DAY FOR 6 MONTHS)
     Route: 065
  6. APIXABAN [Suspect]
     Active Substance: APIXABAN
     Dosage: 1 DOSAGE FORM, BID (10MG TWICE PER DAY FOR ONE WEEK, THEN 5MG TWICE A DAY FOR 6 MONTHS)
  7. APIXABAN [Suspect]
     Active Substance: APIXABAN
     Dosage: 1 DOSAGE FORM, BID (10MG TWICE PER DAY FOR ONE WEEK, THEN 5MG TWICE A DAY FOR 6 MONTHS)
  8. APIXABAN [Suspect]
     Active Substance: APIXABAN
     Dosage: 1 DOSAGE FORM, BID (10MG TWICE PER DAY FOR ONE WEEK, THEN 5MG TWICE A DAY FOR 6 MONTHS)
     Route: 065
  9. FUROSEMIDE [Concomitant]
     Active Substance: FUROSEMIDE
     Indication: Fluid retention
  10. FUROSEMIDE [Concomitant]
     Active Substance: FUROSEMIDE
     Route: 065
  11. FUROSEMIDE [Concomitant]
     Active Substance: FUROSEMIDE
     Route: 065
  12. FUROSEMIDE [Concomitant]
     Active Substance: FUROSEMIDE
  13. BUPRENORPHINE [Concomitant]
     Active Substance: BUPRENORPHINE
     Indication: Pain management
  14. BUPRENORPHINE [Concomitant]
     Active Substance: BUPRENORPHINE
     Route: 065
  15. BUPRENORPHINE [Concomitant]
     Active Substance: BUPRENORPHINE
     Route: 065
  16. BUPRENORPHINE [Concomitant]
     Active Substance: BUPRENORPHINE
  17. PREGABALIN [Concomitant]
     Active Substance: PREGABALIN
     Indication: Depressed mood
  18. PREGABALIN [Concomitant]
     Active Substance: PREGABALIN
     Route: 065
  19. PREGABALIN [Concomitant]
     Active Substance: PREGABALIN
     Route: 065
  20. PREGABALIN [Concomitant]
     Active Substance: PREGABALIN
  21. SENNA [Concomitant]
     Active Substance: SENNOSIDES
     Indication: Constipation
  22. SENNA [Concomitant]
     Active Substance: SENNOSIDES
     Route: 065
  23. SENNA [Concomitant]
     Active Substance: SENNOSIDES
     Route: 065
  24. SENNA [Concomitant]
     Active Substance: SENNOSIDES
  25. MIRTAZAPINE [Concomitant]
     Active Substance: MIRTAZAPINE
     Indication: Depressed mood
  26. MIRTAZAPINE [Concomitant]
     Active Substance: MIRTAZAPINE
     Route: 065
  27. MIRTAZAPINE [Concomitant]
     Active Substance: MIRTAZAPINE
     Route: 065
  28. MIRTAZAPINE [Concomitant]
     Active Substance: MIRTAZAPINE
  29. VENLAFAXINE [Concomitant]
     Active Substance: VENLAFAXINE HYDROCHLORIDE
     Indication: Depressed mood
  30. VENLAFAXINE [Concomitant]
     Active Substance: VENLAFAXINE HYDROCHLORIDE
     Route: 065
  31. VENLAFAXINE [Concomitant]
     Active Substance: VENLAFAXINE HYDROCHLORIDE
     Route: 065
  32. VENLAFAXINE [Concomitant]
     Active Substance: VENLAFAXINE HYDROCHLORIDE
  33. LITHIUM [Concomitant]
     Active Substance: LITHIUM
     Indication: Depressed mood
  34. LITHIUM [Concomitant]
     Active Substance: LITHIUM
     Route: 065
  35. LITHIUM [Concomitant]
     Active Substance: LITHIUM
     Route: 065
  36. LITHIUM [Concomitant]
     Active Substance: LITHIUM
  37. ACETAMINOPHEN [Concomitant]
     Active Substance: ACETAMINOPHEN
  38. ACETAMINOPHEN [Concomitant]
     Active Substance: ACETAMINOPHEN
     Route: 065
  39. ACETAMINOPHEN [Concomitant]
     Active Substance: ACETAMINOPHEN
     Route: 065
  40. ACETAMINOPHEN [Concomitant]
     Active Substance: ACETAMINOPHEN
  41. COVID-19 vaccine [Concomitant]
     Indication: COVID-19 immunisation
     Dates: start: 20250401, end: 20250401
  42. COVID-19 vaccine [Concomitant]
     Route: 065
     Dates: start: 20250401, end: 20250401
  43. COVID-19 vaccine [Concomitant]
     Route: 065
     Dates: start: 20250401, end: 20250401
  44. COVID-19 vaccine [Concomitant]
     Dates: start: 20250401, end: 20250401
  45. BENSERAZIDE HYDROCHLORIDE\LEVODOPA [Concomitant]
     Active Substance: BENSERAZIDE HYDROCHLORIDE\LEVODOPA
     Indication: Parkinson^s disease
  46. BENSERAZIDE HYDROCHLORIDE\LEVODOPA [Concomitant]
     Active Substance: BENSERAZIDE HYDROCHLORIDE\LEVODOPA
     Route: 065
  47. BENSERAZIDE HYDROCHLORIDE\LEVODOPA [Concomitant]
     Active Substance: BENSERAZIDE HYDROCHLORIDE\LEVODOPA
     Route: 065
  48. BENSERAZIDE HYDROCHLORIDE\LEVODOPA [Concomitant]
     Active Substance: BENSERAZIDE HYDROCHLORIDE\LEVODOPA
  49. MIDODRINE [Concomitant]
     Active Substance: MIDODRINE
     Indication: Blood pressure management
  50. MIDODRINE [Concomitant]
     Active Substance: MIDODRINE
     Route: 065
  51. MIDODRINE [Concomitant]
     Active Substance: MIDODRINE
     Route: 065
  52. MIDODRINE [Concomitant]
     Active Substance: MIDODRINE
  53. VOLTAROL [Concomitant]
     Active Substance: DICLOFENAC SODIUM
  54. VOLTAROL [Concomitant]
     Active Substance: DICLOFENAC SODIUM
     Route: 065
  55. VOLTAROL [Concomitant]
     Active Substance: DICLOFENAC SODIUM
     Route: 065
  56. VOLTAROL [Concomitant]
     Active Substance: DICLOFENAC SODIUM
  57. ESTRIOL [Concomitant]
     Active Substance: ESTRIOL
  58. ESTRIOL [Concomitant]
     Active Substance: ESTRIOL
     Route: 065
  59. ESTRIOL [Concomitant]
     Active Substance: ESTRIOL
     Route: 065
  60. ESTRIOL [Concomitant]
     Active Substance: ESTRIOL
  61. POLYETHYLENE GLYCOL 3350\POTASSIUM CHLORIDE\SODIUM BICARBONATE\SODIUM [Concomitant]
     Active Substance: POLYETHYLENE GLYCOL 3350\POTASSIUM CHLORIDE\SODIUM BICARBONATE\SODIUM CHLORIDE
     Indication: Constipation
  62. POLYETHYLENE GLYCOL 3350\POTASSIUM CHLORIDE\SODIUM BICARBONATE\SODIUM [Concomitant]
     Active Substance: POLYETHYLENE GLYCOL 3350\POTASSIUM CHLORIDE\SODIUM BICARBONATE\SODIUM CHLORIDE
     Route: 065
  63. POLYETHYLENE GLYCOL 3350\POTASSIUM CHLORIDE\SODIUM BICARBONATE\SODIUM [Concomitant]
     Active Substance: POLYETHYLENE GLYCOL 3350\POTASSIUM CHLORIDE\SODIUM BICARBONATE\SODIUM CHLORIDE
     Route: 065
  64. POLYETHYLENE GLYCOL 3350\POTASSIUM CHLORIDE\SODIUM BICARBONATE\SODIUM [Concomitant]
     Active Substance: POLYETHYLENE GLYCOL 3350\POTASSIUM CHLORIDE\SODIUM BICARBONATE\SODIUM CHLORIDE

REACTIONS (7)
  - Cerebral haemorrhage [Fatal]
  - Musculoskeletal stiffness [Not Recovered/Not Resolved]
  - Seizure [Not Recovered/Not Resolved]
  - Headache [Not Recovered/Not Resolved]
  - Hyperventilation [Not Recovered/Not Resolved]
  - Neck pain [Not Recovered/Not Resolved]
  - Dyspnoea [Not Recovered/Not Resolved]

NARRATIVE: CASE EVENT DATE: 20250328
